FAERS Safety Report 6076639-7 (Version None)
Quarter: 2009Q1

REPORT INFORMATION
  Report Type: 
  Country: None (occurrence: None)
  Receive Date: 20090212
  Receipt Date: 20090212
  Transmission Date: 20090719
  Serious: Yes (Hospitalization)
  Sender: FDA-Public Use
  Company Number: None

PATIENT
  Sex: Female
  Weight: 62.6 kg

DRUGS (3)
  1. OXALIPLATIN [Suspect]
     Indication: COLON CANCER
     Dosage: 70MG/M2 Q 14 DAYS IV
     Route: 042
     Dates: start: 20080912, end: 20081231
  2. CAPECITABINE [Suspect]
     Indication: COLON CANCER
     Dosage: 625 MG/M2 BID X 28 DAYS PO
     Route: 048
     Dates: start: 20080912, end: 20090108
  3. BEVACIZUMAB [Suspect]
     Indication: COLON CANCER
     Dosage: 5MG/M2 Q 14 DAYS IV
     Route: 042
     Dates: start: 20080912, end: 20081231

REACTIONS (4)
  - CATHETER BACTERAEMIA [None]
  - ILEITIS [None]
  - STAPHYLOCOCCAL BACTERAEMIA [None]
  - URINARY TRACT INFECTION [None]
